FAERS Safety Report 17717135 (Version 1)
Quarter: 2020Q2

REPORT INFORMATION
  Report Type: Spontaneous
  Country: US (occurrence: US)
  Receive Date: 20200428
  Receipt Date: 20200428
  Transmission Date: 20200714
  Serious: Yes (Hospitalization, Other)
  Sender: FDA-Public Use
  Company Number: US-VISTAPHARM, INC.-VER202004-000809

PATIENT
  Age: 20 Day
  Sex: Male
  Weight: .8 kg

DRUGS (6)
  1. MORPHINE [Concomitant]
     Active Substance: MORPHINE
     Indication: SEDATION
  2. METHADONE [Suspect]
     Active Substance: METHADONE HYDROCHLORIDE
     Indication: ANALGESIC THERAPY
     Dosage: 39 MCG Q6H BY FEEDING TUBE
  3. MORPHINE [Concomitant]
     Active Substance: MORPHINE
     Indication: SEDATION
     Route: 042
  4. FENTANYL. [Concomitant]
     Active Substance: FENTANYL
     Indication: ANALGESIC THERAPY
     Dosage: 19 MCG/ KG/H
  5. FENTANYL. [Concomitant]
     Active Substance: FENTANYL
     Indication: SEDATION
     Dosage: 10 MCG/KG/H
  6. METHADONE [Suspect]
     Active Substance: METHADONE HYDROCHLORIDE
     Dosage: 7.8 MG (APPROXIMATELY 200-FOLD THE INTENDED DOSE)

REACTIONS (4)
  - Overdose [Recovered/Resolved]
  - Respiratory depression [Recovered/Resolved]
  - Chest discomfort [Recovered/Resolved]
  - Clonus [Recovered/Resolved]
